FAERS Safety Report 21611524 (Version 1)
Quarter: 2022Q4

REPORT INFORMATION
  Report Type: Report from Study
  Country: AU (occurrence: AU)
  Receive Date: 20221117
  Receipt Date: 20221117
  Transmission Date: 20230113
  Serious: Yes (Other)
  Sender: FDA-Public Use
  Company Number: AU-ABBVIE-4165701

PATIENT
  Sex: Male

DRUGS (18)
  1. CARBIDOPA\LEVODOPA [Suspect]
     Active Substance: CARBIDOPA\LEVODOPA
     Indication: Parkinson^s disease
     Dosage: DURATION TEXT 16 HOURS?DUODOPA 100ML GEL CASSETTE?20/5MG/ML INTESTINAL GEL INFUSION THROUGH GASTR...
     Route: 050
     Dates: start: 20170523
  2. CARBIDOPA\LEVODOPA [Suspect]
     Active Substance: CARBIDOPA\LEVODOPA
  3. MELOXICAM [Concomitant]
     Active Substance: MELOXICAM
     Indication: Product used for unknown indication
     Dosage: AS NEEDED
  4. BENSERAZIDE HYDROCHLORIDE\LEVODOPA [Concomitant]
     Active Substance: BENSERAZIDE HYDROCHLORIDE\LEVODOPA
     Indication: Product used for unknown indication
     Dosage: 100/25?AT 21:30 PM
  5. BENSERAZIDE HYDROCHLORIDE\LEVODOPA [Concomitant]
     Active Substance: BENSERAZIDE HYDROCHLORIDE\LEVODOPA
     Indication: Product used for unknown indication
     Dosage: 200/50 1 CAPSULE?AT 21:30 PM
  6. QUETIAPINE [Concomitant]
     Active Substance: QUETIAPINE
     Indication: Product used for unknown indication
     Dosage: AT NIGHT
  7. ACETAMINOPHEN [Concomitant]
     Active Substance: ACETAMINOPHEN
     Indication: Product used for unknown indication
     Dosage: AT NIGHT
  8. MIRABEGRON [Concomitant]
     Active Substance: MIRABEGRON
     Indication: Product used for unknown indication
     Dosage: NIGHT TIME
  9. PANTOPRAZOLE [Concomitant]
     Active Substance: PANTOPRAZOLE
     Indication: Product used for unknown indication
     Dosage: AT NIGHT
  10. VITAMIN C [Concomitant]
     Active Substance: ASCORBIC ACID
     Indication: Product used for unknown indication
  11. LATANOPROSTA [Concomitant]
     Indication: Product used for unknown indication
     Dosage: 1 DROP TO THE LEFT EYE?LATANOPROST EYE DROPS?AT NIGHT
     Route: 047
  12. RASAGILINE [Concomitant]
     Active Substance: RASAGILINE
     Indication: Product used for unknown indication
     Dosage: AT 06:00 AM
  13. AMANTADINE [Concomitant]
     Active Substance: AMANTADINE
     Indication: Product used for unknown indication
     Dosage: IN THE MORNING
  14. AMANTADINE [Concomitant]
     Active Substance: AMANTADINE
     Indication: Product used for unknown indication
     Dosage: IN THE MORNING
  15. VITAMIN B [Concomitant]
     Active Substance: VITAMIN B
     Indication: Product used for unknown indication
     Dosage: VITAMIN B SUPPLEMENT
  16. BENEFIBER [Concomitant]
     Active Substance: STARCH, WHEAT
     Indication: Product used for unknown indication
     Dosage: 3/4 TSP
  17. PREGABALIN [Concomitant]
     Active Substance: PREGABALIN
     Indication: Product used for unknown indication
     Dosage: AT 22:00 PM
  18. POLYETHYLENE GLYCOLS [Concomitant]
     Active Substance: POLYETHYLENE GLYCOLS
     Indication: Product used for unknown indication

REACTIONS (13)
  - Retinal detachment [Unknown]
  - Musculoskeletal disorder [Unknown]
  - Illusion [Recovering/Resolving]
  - Nocturia [Not Recovered/Not Resolved]
  - Goitre [Unknown]
  - Cognitive disorder [Unknown]
  - Constipation [Unknown]
  - Anal incontinence [Unknown]
  - Muscle atrophy [Unknown]
  - Anxiety [Unknown]
  - Nightmare [Recovering/Resolving]
  - Dyskinesia [Unknown]
  - Therapeutic product effect incomplete [Unknown]
